FAERS Safety Report 15404375 (Version 1)
Quarter: 2018Q3

REPORT INFORMATION
  Report Type: Spontaneous
  Country: RO (occurrence: RO)
  Receive Date: 20180919
  Receipt Date: 20180919
  Transmission Date: 20181010
  Serious: Yes (Life-Threatening)
  Sender: FDA-Public Use
  Company Number: PHHY2018RO102885

PATIENT
  Age: 65 Year
  Sex: Female

DRUGS (1)
  1. OXALIPLATIN. [Suspect]
     Active Substance: OXALIPLATIN
     Indication: COLORECTAL CANCER
     Dosage: 195 MG
     Route: 042

REACTIONS (4)
  - Judgement impaired [Unknown]
  - Somnolence [Unknown]
  - Hyperhidrosis [Unknown]
  - Dyslalia [Unknown]

NARRATIVE: CASE EVENT DATE: 20180903
